FAERS Safety Report 5933174-1 (Version None)
Quarter: 2008Q4

REPORT INFORMATION
  Report Type: 
  Country: None (occurrence: None)
  Receive Date: 20081023
  Receipt Date: 20060529
  Transmission Date: 20090506
  Serious: Yes (Hospitalization, Other)
  Sender: FDA-Public Use
  Company Number: 2006AL002096

PATIENT
  Age: 61 Year
  Sex: Male

DRUGS (8)
  1. IBUPROFEN TABLETS [Suspect]
     Dosage: 400 MG; TID; PO
     Route: 048
     Dates: start: 20060313
  2. ENULOSE [Suspect]
     Indication: CONSTIPATION
     Dosage: 10 MG; TID; PO
     Route: 048
  3. ASPIRIN [Concomitant]
  4. CLOPIDOGREL [Concomitant]
  5. SIMVASTATIN [Concomitant]
  6. BENDROFLUAZIDE [Concomitant]
  7. RAMIPRIL [Concomitant]
  8. ACETAMINOPHEN [Concomitant]

REACTIONS (5)
  - BLOOD CREATININE INCREASED [None]
  - CONFUSIONAL STATE [None]
  - HAEMOGLOBIN DECREASED [None]
  - MELAENA [None]
  - OESOPHAGITIS [None]
